FAERS Safety Report 8453562-1 (Version None)
Quarter: 2012Q2

REPORT INFORMATION
  Report Type: 
  Country: None (occurrence: None)
  Receive Date: 20120620
  Receipt Date: 20120613
  Transmission Date: 20120825
  Serious: Yes (Life-Threatening)
  Sender: FDA-Public Use
  Company Number: JP-UCBSA-059655

PATIENT
  Age: 37 Year
  Sex: Female
  Weight: 45.5 kg

DRUGS (13)
  1. MUCODYNE [Concomitant]
     Dosage: DAILY DOSE 1500 MG
     Route: 048
     Dates: start: 20120211
  2. ADONA [Concomitant]
     Dosage: DAILY DOSE 90 MG
     Route: 048
     Dates: start: 20120229
  3. KEPPRA [Suspect]
     Route: 048
     Dates: start: 20120125, end: 20120127
  4. MEILAX [Concomitant]
     Dosage: DAILY DOSE 1 MG
     Route: 048
  5. PANVITAN [Concomitant]
     Dosage: DAILY DOSE 1 GM
     Route: 048
  6. TRANSAMINE CAP [Concomitant]
     Dosage: DAILY DOSE 750 MG
     Route: 048
     Dates: start: 20120229
  7. CLOBAZAM [Concomitant]
     Indication: SIMPLE PARTIAL SEIZURES
     Dosage: DAILY DOSE 20 MG
     Route: 048
     Dates: start: 20120201
  8. LANSOPRAZOLE [Concomitant]
     Dosage: DAILY DOSE 15 MG
     Route: 048
  9. MAGMITT [Concomitant]
     Dosage: DAILY DOSE 990 MG
     Route: 048
  10. FERROUS CITRATE [Concomitant]
     Dosage: DAILY DOSE: 100 MG
     Route: 048
  11. KEPPRA [Suspect]
     Indication: SIMPLE PARTIAL SEIZURES
     Route: 048
     Dates: start: 20120128
  12. BETAMETHASONE [Concomitant]
     Dosage: DAILY DOSE 0.5 MG
     Route: 048
  13. LECICARBON [Concomitant]
     Dosage: DAILY DOSE 2.6 GRAM
     Route: 054
     Dates: start: 20120428, end: 20120531

REACTIONS (1)
  - PANCYTOPENIA [None]
